FAERS Safety Report 6374000-9 (Version None)
Quarter: 2009Q3

REPORT INFORMATION
  Report Type: 
  Country: None (occurrence: None)
  Receive Date: 20090924
  Receipt Date: 20090914
  Transmission Date: 20100115
  Serious: Yes (Other)
  Sender: FDA-Public Use
  Company Number: US-ROCHE-657368

PATIENT
  Age: 49 Year
  Sex: Male

DRUGS (2)
  1. ENFUVIRTIDE [Suspect]
     Route: 058
  2. RALTEGRAVIR [Suspect]
     Route: 048

REACTIONS (1)
  - DIABETIC KETOACIDOSIS [None]
